FAERS Safety Report 4867042-3 (Version None)
Quarter: 2005Q4

REPORT INFORMATION
  Report Type: 
  Country: None (occurrence: None)
  Receive Date: 20051220
  Receipt Date: 20020310
  Transmission Date: 20060501
  Serious: Yes (Death, Hospitalization)
  Sender: FDA-Public Use
  Company Number: 8-98323-003X

PATIENT
  Age: 53 Year
  Sex: Male

DRUGS (5)
  1. GEMTUZUMAB OZOGOMICIN [Suspect]
     Indication: ACUTE MYELOID LEUKAEMIA
     Dosage: CYCLE 1 (13-OCT-98) : CYCLE    2 CYCLE  INTRAVENOUS; 2 (02-NOV-98) : 9 MG/M (2)
     Route: 042
     Dates: start: 19981013, end: 19981102
  2. CIPROXIN            (CIPROFLOXACIN) [Concomitant]
  3. DIFLUCAN            (FLUCONAZOLE) [Concomitant]
  4. TAVEGIL / SOLU-CORTEF            (CLEMASTINE/HYDROCORTISONE) [Concomitant]
  5. .............. [Concomitant]

REACTIONS (9)
  - ASTHENIA [None]
  - BLAST CELLS PRESENT [None]
  - BLOOD LACTATE DEHYDROGENASE INCREASED [None]
  - HYPERTENSION [None]
  - HYPOTENSION [None]
  - INFECTION [None]
  - PANCYTOPENIA [None]
  - PNEUMONIA [None]
  - RESPIRATORY FAILURE [None]
